FAERS Safety Report 8377467-X (Version None)
Quarter: 2012Q2

REPORT INFORMATION
  Report Type: 
  Country: None (occurrence: None)
  Receive Date: 20120522
  Receipt Date: 20120103
  Transmission Date: 20120825
  Serious: No
  Sender: FDA-Public Use
  Company Number: US-ASTRAZENECA-2012SE00288

PATIENT

DRUGS (2)
  1. OMEPRAZOLE [Suspect]
     Indication: HELICOBACTER INFECTION
     Route: 048
  2. AMOXICILLIN [Suspect]
     Indication: HELICOBACTER INFECTION

REACTIONS (2)
  - DIARRHOEA [None]
  - DECREASED APPETITE [None]
